FAERS Safety Report 6651554-6 (Version None)
Quarter: 2010Q1

REPORT INFORMATION
  Report Type: 
  Country: None (occurrence: None)
  Receive Date: 20100325
  Receipt Date: 20100315
  Transmission Date: 20100710
  Serious: Yes (Hospitalization, Disabling)
  Sender: FDA-Public Use
  Company Number: B0606362A

PATIENT
  Sex: Male

DRUGS (18)
  1. FLUTIDE [Suspect]
     Indication: ASTHMA
     Route: 055
     Dates: start: 20080201, end: 20090901
  2. ZIAGEN [Suspect]
     Indication: DRUG USE FOR UNKNOWN INDICATION
     Route: 048
  3. NORVIR [Suspect]
     Indication: DRUG USE FOR UNKNOWN INDICATION
     Dosage: 100MG PER DAY
     Route: 048
     Dates: end: 20091101
  4. TENOFOVIR DISOPROXIL FUMARATE [Suspect]
     Indication: HIV INFECTION
     Dosage: 300MG PER DAY
     Route: 048
     Dates: end: 20091101
  5. RITONAVIR [Concomitant]
     Indication: DRUG USE FOR UNKNOWN INDICATION
     Route: 048
  6. EPIVIR [Concomitant]
     Route: 048
  7. RETROVIR [Concomitant]
     Route: 048
  8. EFAVIRENZ [Concomitant]
     Route: 048
  9. EMTRICITABINE [Concomitant]
     Route: 048
  10. RALTEGRAVIR POTASSIUM [Concomitant]
     Route: 048
  11. SERETIDE [Concomitant]
     Dosage: 1000MCG PER DAY
     Route: 055
     Dates: end: 20090301
  12. PULMICORT [Concomitant]
     Indication: ASTHMA
     Route: 055
     Dates: start: 20090901, end: 20091101
  13. EMTRIVA [Concomitant]
     Indication: HIV INFECTION
     Route: 048
     Dates: start: 20080301, end: 20090901
  14. KALETRA [Concomitant]
     Indication: HIV INFECTION
     Route: 048
     Dates: start: 20080301, end: 20090901
  15. ISENTRESS [Concomitant]
     Indication: HIV INFECTION
     Route: 048
     Dates: start: 20090901, end: 20091101
  16. PREZISTA [Concomitant]
     Indication: HIV INFECTION
     Route: 048
     Dates: start: 20090901, end: 20091101
  17. HOKUNALIN [Concomitant]
     Route: 062
     Dates: start: 20090301
  18. SINGULAIR [Concomitant]
     Route: 048
     Dates: start: 20090301

REACTIONS (7)
  - ADRENAL INSUFFICIENCY [None]
  - CUSHING'S SYNDROME [None]
  - DRUG INTERACTION [None]
  - MULTIPLE FRACTURES [None]
  - OEDEMA PERIPHERAL [None]
  - OSTEOPOROSIS [None]
  - SPINAL COMPRESSION FRACTURE [None]
